FAERS Safety Report 16079355 (Version 1)
Quarter: 2019Q1

REPORT INFORMATION
  Report Type: Report from Study
  Country: ES (occurrence: ES)
  Receive Date: 20190315
  Receipt Date: 20190315
  Transmission Date: 20190418
  Serious: Yes (Death, Hospitalization)
  Sender: FDA-Public Use
  Company Number: ES-TEVA-2019-ES-1023482

PATIENT
  Age: 77 Year
  Sex: Male

DRUGS (6)
  1. SIMVASTATINA (1023A) [Interacting]
     Active Substance: SIMVASTATIN
     Indication: DYSLIPIDAEMIA
     Dosage: 40 MILLIGRAM DAILY;
     Route: 048
     Dates: start: 20130708, end: 20180904
  2. OMEPRAZOL (2141A) [Suspect]
     Active Substance: OMEPRAZOLE
     Indication: PROPHYLAXIS
     Dosage: 20 MILLIGRAM DAILY;
     Route: 048
     Dates: start: 20080128, end: 20180904
  3. SINTROM [Interacting]
     Active Substance: ACENOCOUMAROL
     Indication: ATRIAL FIBRILLATION
     Route: 048
     Dates: start: 20090629, end: 20180904
  4. FORMOTEROL FUMARATO (2562FF) [Concomitant]
     Indication: CHRONIC OBSTRUCTIVE PULMONARY DISEASE
     Dosage: 24 MICROGRAM DAILY;
     Route: 055
     Dates: start: 20080414, end: 20180904
  5. LACEROL HTA RETARD 240 MG CAPSULAS DURAS DE LIBERACION PROLONGADA , 20 [Concomitant]
     Indication: HYPERTENSION
     Dosage: 1 DOSAGE FORMS DAILY;
     Route: 048
     Dates: start: 20151203, end: 20180904
  6. APOCARD 100 MG COMPRIMIDOS , 30 COMPRIMIDOS [Concomitant]
     Indication: ATRIAL FIBRILLATION
     Dosage: 1 DOSAGE FORMS DAILY;
     Route: 048
     Dates: start: 20140227, end: 20180904

REACTIONS (2)
  - Drug interaction [Unknown]
  - Subdural haemorrhage [Fatal]

NARRATIVE: CASE EVENT DATE: 20180904
